FAERS Safety Report 14316610 (Version 2)
Quarter: 2018Q1

REPORT INFORMATION
  Report Type: Spontaneous
  Country: US (occurrence: US)
  Receive Date: 20171222
  Receipt Date: 20180114
  Transmission Date: 20180509
  Serious: No
  Sender: FDA-Public Use
  Company Number: US-B.I. PHARMACEUTICALS,INC./RIDGEFIELD-2017-BI-067340

PATIENT
  Age: 80 Year
  Sex: Female

DRUGS (1)
  1. SPIRIVA [Suspect]
     Active Substance: TIOTROPIUM BROMIDE MONOHYDRATE
     Indication: CHRONIC OBSTRUCTIVE PULMONARY DISEASE
     Dosage: 1 CAPUSLE DAILY;  ADMINISTRATION CORRECT? YES ?ACTION(S) TAKEN WITH PRODUCT: DOSE NOT CHANGED
     Route: 055
     Dates: start: 20171026

REACTIONS (2)
  - Peripheral swelling [Not Recovered/Not Resolved]
  - Product physical issue [Unknown]

NARRATIVE: CASE EVENT DATE: 201712
